FAERS Safety Report 24586050 (Version 1)
Quarter: 2024Q4

REPORT INFORMATION
  Report Type: Spontaneous
  Country: US (occurrence: US)
  Receive Date: 20241106
  Receipt Date: 20241106
  Transmission Date: 20250114
  Serious: No
  Sender: MYLAN
  Company Number: US-MYLANLABS-2024M1099918

PATIENT
  Sex: Female
  Weight: 55.79 kg

DRUGS (2)
  1. XANAX [Suspect]
     Active Substance: ALPRAZOLAM
     Indication: Anxiety
     Dosage: 0.5 MILLIGRAM (ONCE A DAY, SOMETIMES I TAKE IT TWICE A DAY DEPENDS ON THE ANXIETY)
     Route: 048
  2. XANAX [Suspect]
     Active Substance: ALPRAZOLAM
     Dosage: 0.5 MILLIGRAM, BID (TWICE A DAY)
     Route: 048

REACTIONS (1)
  - Intentional product misuse [Unknown]
